FAERS Safety Report 25713429 (Version 1)
Quarter: 2025Q3

REPORT INFORMATION
  Report Type: Other
  Country: US (occurrence: US)
  Receive Date: 20250822
  Receipt Date: 20250822
  Transmission Date: 20251020
  Serious: Yes (Hospitalization, Other)
  Sender: Fourrts (India) Laboratories
  Company Number: US-Fourrts (India) Laboratories Pvt. Ltd.-2182986

PATIENT
  Age: 65 Year
  Sex: Female

DRUGS (2)
  1. TADALAFIL [Suspect]
     Active Substance: TADALAFIL
     Indication: Pulmonary arterial hypertension
  2. MACITENTAN [Suspect]
     Active Substance: MACITENTAN

REACTIONS (3)
  - Condition aggravated [Recovered/Resolved]
  - Pleural effusion [Recovered/Resolved]
  - Lymphadenopathy mediastinal [Recovered/Resolved]
